FAERS Safety Report 13047181 (Version 1)
Quarter: 2016Q4

REPORT INFORMATION
  Report Type: Spontaneous
  Country: US (occurrence: US)
  Receive Date: 20161220
  Receipt Date: 20161220
  Transmission Date: 20170207
  Serious: No
  Sender: FDA-Public Use
  Company Number: US-INCYTE CORPORATION-2016IN007991

PATIENT
  Age: 78 Year
  Sex: Female

DRUGS (2)
  1. MELOXICAM. [Concomitant]
     Active Substance: MELOXICAM
     Indication: PRODUCT USED FOR UNKNOWN INDICATION
  2. JAKAFI [Suspect]
     Active Substance: RUXOLITINIB
     Indication: MYELOFIBROSIS
     Dosage: 10 MG, BID
     Route: 048
     Dates: start: 20161213

REACTIONS (5)
  - Abdominal pain [Unknown]
  - Muscular weakness [Unknown]
  - Dyspnoea [Unknown]
  - Splenomegaly [Unknown]
  - Fatigue [Unknown]

NARRATIVE: CASE EVENT DATE: 20161213
